FAERS Safety Report 10210018 (Version 2)
Quarter: 2014Q3

REPORT INFORMATION
  Report Type: Spontaneous
  Country: IT (occurrence: IT)
  Receive Date: 20140602
  Receipt Date: 20140922
  Transmission Date: 20150326
  Serious: Yes (Life-Threatening)
  Sender: FDA-Public Use
  Company Number: IT-ROCHE-1410612

PATIENT
  Age: 73 Year
  Sex: Female

DRUGS (4)
  1. PRITOR (ITALY) [Concomitant]
     Route: 065
     Dates: start: 201311
  2. SEQUACOR [Concomitant]
     Active Substance: BISOPROLOL
     Route: 065
     Dates: start: 201311
  3. LUCENTIS [Suspect]
     Active Substance: RANIBIZUMAB
     Indication: AGE-RELATED MACULAR DEGENERATION
     Dosage: QMO
     Route: 050
     Dates: start: 20140227
  4. LUCENTIS [Suspect]
     Active Substance: RANIBIZUMAB
     Route: 050
     Dates: start: 20140403

REACTIONS (2)
  - Angina unstable [Recovered/Resolved]
  - Coronary arterial stent insertion [Recovered/Resolved]

NARRATIVE: CASE EVENT DATE: 20140423
